FAERS Safety Report 20989518 (Version 16)
Quarter: 2023Q4

REPORT INFORMATION
  Report Type: Spontaneous
  Country: CA (occurrence: CA)
  Receive Date: 20220621
  Receipt Date: 20231121
  Transmission Date: 20240110
  Serious: Yes (Other)
  Sender: FDA-Public Use
  Company Number: CA-CELLTRION INC.-2022CA005576

PATIENT

DRUGS (10)
  1. INFLECTRA [Suspect]
     Active Substance: INFLIXIMAB-DYYB
     Indication: Crohn^s disease
     Dosage: 5 MG/KG, EVERY 6 WEEKS
     Route: 042
     Dates: start: 20220418
  2. INFLECTRA [Suspect]
     Active Substance: INFLIXIMAB-DYYB
     Dosage: 5 MG/KG, EVERY 6 WEEKS
     Route: 042
     Dates: start: 20220721
  3. INFLECTRA [Suspect]
     Active Substance: INFLIXIMAB-DYYB
     Dosage: 5 MG/KG, EVERY 6 WEEKS
     Route: 042
     Dates: start: 20230220
  4. INFLECTRA [Suspect]
     Active Substance: INFLIXIMAB-DYYB
     Dosage: 5 MG/KG, EVERY 6 WEEKS
     Route: 042
     Dates: start: 20230414
  5. INFLECTRA [Suspect]
     Active Substance: INFLIXIMAB-DYYB
     Dosage: 5 MG/KG (425MG), EVERY 6 WEEKS
     Route: 042
     Dates: start: 20230526
  6. INFLECTRA [Suspect]
     Active Substance: INFLIXIMAB-DYYB
     Dosage: 5 MG/KG (430 MG), EVERY 6 WEEKS
     Route: 042
     Dates: start: 20230630
  7. INFLECTRA [Suspect]
     Active Substance: INFLIXIMAB-DYYB
     Dosage: 5 MG/KG (430 MG), EVERY 6 WEEKS
     Route: 042
     Dates: start: 20230630
  8. INFLECTRA [Suspect]
     Active Substance: INFLIXIMAB-DYYB
     Dosage: 440 MG, EVERY 6 WEEKS
     Route: 042
     Dates: start: 20230811
  9. INFLECTRA [Suspect]
     Active Substance: INFLIXIMAB-DYYB
     Dosage: 5 MG/KG (440 MG), EVERY 6 WEEKS (AFTER 7 WEEKS)
     Route: 042
     Dates: start: 20230929
  10. INFLECTRA [Suspect]
     Active Substance: INFLIXIMAB-DYYB
     Dosage: 5 MG/KG EVERY 6 WEEKS, (445 MG)
     Route: 042
     Dates: start: 20231110

REACTIONS (17)
  - Wound [Recovered/Resolved]
  - Gastric ulcer [Unknown]
  - Drug ineffective [Unknown]
  - Abdominal pain upper [Not Recovered/Not Resolved]
  - Insomnia [Unknown]
  - Condition aggravated [Recovering/Resolving]
  - Arthralgia [Not Recovered/Not Resolved]
  - Anal fissure [Recovered/Resolved]
  - Abdominal rigidity [Not Recovered/Not Resolved]
  - Discomfort [Not Recovered/Not Resolved]
  - Poor quality sleep [Unknown]
  - Abdominal distension [Not Recovered/Not Resolved]
  - Constipation [Not Recovered/Not Resolved]
  - Off label use [Unknown]
  - Off label use [Unknown]
  - Intentional product use issue [Unknown]
  - Inappropriate schedule of product administration [Unknown]

NARRATIVE: CASE EVENT DATE: 20220101
